FAERS Safety Report 8987476 (Version 9)
Quarter: 2013Q2

REPORT INFORMATION
  Report Type: Report from Study
  Country: CA (occurrence: CA)
  Receive Date: 20121227
  Receipt Date: 20130613
  Transmission Date: 20140414
  Serious: Yes (Other)
  Sender: FDA-Public Use
  Company Number: CA-ROCHE-1130239

PATIENT
  Age: 65 Year
  Sex: Female
  Weight: 96.5 kg

DRUGS (15)
  1. ACTEMRA [Suspect]
     Indication: RHEUMATOID ARTHRITIS
     Route: 042
     Dates: start: 20110519, end: 20120618
  2. ACTEMRA [Suspect]
     Route: 042
     Dates: start: 20121221
  3. ACTEMRA [Suspect]
     Route: 042
     Dates: start: 20130122
  4. ACTEMRA [Suspect]
     Route: 042
     Dates: start: 20130319
  5. ASPIRIN [Concomitant]
  6. LOSEC (CANADA) [Concomitant]
  7. VASOTEC [Concomitant]
  8. BLOCADREN [Concomitant]
  9. XANAX [Concomitant]
  10. PRAVASTATIN [Concomitant]
  11. METHOTREXATE [Concomitant]
  12. HYDROCHLOROTHIAZIDE [Concomitant]
  13. FOLIC ACID [Concomitant]
  14. OMEGA 3 [Concomitant]
  15. TYLENOL [Concomitant]

REACTIONS (14)
  - Blood urine present [Recovered/Resolved]
  - Cough [Not Recovered/Not Resolved]
  - Lung infection [Not Recovered/Not Resolved]
  - Herpes zoster [Recovered/Resolved]
  - Dysuria [Recovered/Resolved]
  - Urinary tract infection [Recovering/Resolving]
  - Dyspnoea [Not Recovered/Not Resolved]
  - Wheezing [Not Recovered/Not Resolved]
  - Bronchitis [Not Recovered/Not Resolved]
  - Productive cough [Not Recovered/Not Resolved]
  - Weight increased [Not Recovered/Not Resolved]
  - Oxygen saturation decreased [Recovering/Resolving]
  - Bite [Recovered/Resolved]
  - Herpes zoster [Recovered/Resolved]
